FAERS Safety Report 25075060 (Version 1)
Quarter: 2025Q1

REPORT INFORMATION
  Report Type: Spontaneous
  Country: JP (occurrence: JP)
  Receive Date: 20250313
  Receipt Date: 20250313
  Transmission Date: 20250409
  Serious: Yes (Hospitalization, Other)
  Sender: AMNEAL
  Company Number: JP-AMNEAL PHARMACEUTICALS-2025-AMRX-00914

PATIENT
  Age: 70 Year
  Sex: Male

DRUGS (2)
  1. ALYMSYS [Suspect]
     Active Substance: BEVACIZUMAB-MALY
     Indication: Hepatocellular carcinoma
     Route: 065
  2. ATEZOLIZUMAB [Suspect]
     Active Substance: ATEZOLIZUMAB
     Indication: Hepatocellular carcinoma
     Route: 065

REACTIONS (3)
  - COVID-19 pneumonia [Recovering/Resolving]
  - COVID-19 [Recovered/Resolved]
  - Traumatic lung injury [Recovering/Resolving]
